FAERS Safety Report 13289804 (Version 4)
Quarter: 2017Q3

REPORT INFORMATION
  Report Type: Spontaneous
  Country: GB (occurrence: GB)
  Receive Date: 20170303
  Receipt Date: 20170809
  Transmission Date: 20171127
  Serious: Yes (Life-Threatening)
  Sender: FDA-Public Use
  Company Number: GB-CIPLA LTD.-2017GB02377

PATIENT

DRUGS (3)
  1. CONTRACEPTIVE PILL [Concomitant]
     Dosage: UNK
     Route: 065
  2. SERTRALINE [Suspect]
     Active Substance: SERTRALINE HYDROCHLORIDE
     Indication: PANIC DISORDER
     Dosage: 25 MG, UNK
     Route: 065
     Dates: start: 201511
  3. ARIPIPARAZOLE [Concomitant]
     Indication: DEPRESSION
     Dosage: 2.5 MG, UNK
     Dates: start: 201511

REACTIONS (7)
  - Flat affect [Unknown]
  - Intentional overdose [Recovered/Resolved]
  - Abnormal behaviour [Unknown]
  - Suicide attempt [Recovered/Resolved]
  - Malaise [Unknown]
  - Mood swings [Unknown]
  - Agitation [Unknown]

NARRATIVE: CASE EVENT DATE: 20151207
